FAERS Safety Report 5144911-0 (Version None)
Quarter: 2006Q4

REPORT INFORMATION
  Report Type: 
  Country: None (occurrence: None)
  Receive Date: 20061107
  Receipt Date: 20061016
  Transmission Date: 20070319
  Serious: Yes (Death, Other)
  Sender: FDA-Public Use
  Company Number: 2006PK02068

PATIENT
  Age: 683 Month
  Sex: Female
  Weight: 61 kg

DRUGS (2)
  1. ZOLADEX [Suspect]
     Indication: BREAST CANCER
     Route: 058
     Dates: start: 20060701
  2. TAMOXIFEN CITRATE [Suspect]
     Indication: BREAST CANCER
     Route: 048
     Dates: start: 20060401

REACTIONS (2)
  - COMPLETED SUICIDE [None]
  - MENOPAUSAL SYMPTOMS [None]
